FAERS Safety Report 11898173 (Version 1)
Quarter: 2016Q1

REPORT INFORMATION
  Report Type: Spontaneous
  Country: US (occurrence: None)
  Receive Date: 20160107
  Receipt Date: 20160107
  Transmission Date: 20160526
  Serious: Yes (Hospitalization)
  Sender: FDA-Public Use
  Company Number: None

PATIENT
  Age: 50 Year
  Sex: Female
  Weight: 46.54 kg

DRUGS (1)
  1. LURBINECTEDIN [Suspect]
     Active Substance: LURBINECTEDIN
     Indication: UTERINE LEIOMYOSARCOMA
     Route: 042
     Dates: start: 20151202

REACTIONS (2)
  - Gastric haemorrhage [None]
  - Haematemesis [None]

NARRATIVE: CASE EVENT DATE: 20151209
